FAERS Safety Report 23642911 (Version 1)
Quarter: 2024Q1

REPORT INFORMATION
  Report Type: Spontaneous
  Country: HR (occurrence: HR)
  Receive Date: 20240318
  Receipt Date: 20240318
  Transmission Date: 20240410
  Serious: Yes (Other)
  Sender: FDA-Public Use
  Company Number: None

PATIENT
  Age: 28 Year
  Sex: Female
  Weight: 76 kg

DRUGS (3)
  1. CIPROFLOXACIN [Suspect]
     Active Substance: CIPROFLOXACIN
     Indication: Urinary tract infection
     Dosage: DOSAGE 2X1
     Route: 048
     Dates: start: 20240126, end: 20240130
  2. Ketonal [Concomitant]
     Indication: Product used for unknown indication
     Dosage: 1-2 TABLETS
     Route: 048
  3. IBUPROFEN [Concomitant]
     Active Substance: IBUPROFEN
     Indication: Product used for unknown indication
     Dosage: 1-2 TABLETS
     Route: 048

REACTIONS (8)
  - Depression [Recovering/Resolving]
  - Arthralgia [Recovering/Resolving]
  - Gait disturbance [Recovering/Resolving]
  - Sitting disability [Recovering/Resolving]
  - Joint swelling [Recovering/Resolving]
  - Vertigo [Recovering/Resolving]
  - Fatigue [Recovering/Resolving]
  - Pelvic pain [Recovering/Resolving]

NARRATIVE: CASE EVENT DATE: 20240129
